FAERS Safety Report 8311184-7 (Version None)
Quarter: 2012Q2

REPORT INFORMATION
  Report Type: 
  Country: None (occurrence: None)
  Receive Date: 20120425
  Receipt Date: 20120420
  Transmission Date: 20120825
  Serious: Yes (Hospitalization)
  Sender: FDA-Public Use
  Company Number: AU-TEVA-330077USA

PATIENT
  Age: 84 Year
  Sex: Female
  Weight: 95.7 kg

DRUGS (11)
  1. PARACETAMOL [Concomitant]
     Dates: start: 20060901
  2. BETAMETHASONE DIPROPIONATE [Concomitant]
     Dates: start: 20120207
  3. TREANDA [Suspect]
     Indication: B-CELL LYMPHOMA
     Dosage: UID/QD
     Route: 042
     Dates: start: 20120109, end: 20120110
  4. TREANDA [Suspect]
     Dosage: UID/QD
     Route: 042
     Dates: start: 20120130, end: 20120221
  5. PIPERACILLIN AND TAZOBACTAM [Concomitant]
  6. TREANDA [Suspect]
     Dosage: UID/QD
     Route: 042
     Dates: start: 20120220
  7. OXYCODONE HYDROCHLORIDE [Concomitant]
  8. ACETYLSALICYLIC ACID SRT [Concomitant]
  9. PANTOPRAZOLE SODIUM [Concomitant]
     Dates: start: 20090101
  10. IRBESARTAN AND HYDROCHLOROTHIAZIDE [Concomitant]
     Dates: start: 19980901
  11. BUDESONIDE W/FORMOTEROL FUMARATE [Concomitant]
     Dates: start: 20111212

REACTIONS (1)
  - LIMB INJURY [None]
